FAERS Safety Report 7720876-X (Version None)
Quarter: 2011Q3

REPORT INFORMATION
  Report Type: 
  Country: None (occurrence: None)
  Receive Date: 20110831
  Receipt Date: 20110818
  Transmission Date: 20111222
  Serious: Yes (Hospitalization)
  Sender: FDA-Public Use
  Company Number: US-US-EMD SERONO, INC.-7006570

PATIENT
  Sex: Female
  Weight: 83 kg

DRUGS (5)
  1. POTASSIUM [Concomitant]
     Indication: PROPHYLAXIS
  2. NORMODYNE [Concomitant]
     Indication: SUPRAVENTRICULAR TACHYCARDIA
  3. REBIF [Suspect]
     Indication: MULTIPLE SCLEROSIS
     Route: 058
     Dates: start: 20081222
  4. LASIX [Concomitant]
     Indication: PROPHYLAXIS
  5. ASPIRIN [Concomitant]
     Indication: PROPHYLAXIS

REACTIONS (12)
  - NASOPHARYNGITIS [None]
  - HYPOTHYROIDISM [None]
  - PAIN IN EXTREMITY [None]
  - BLOOD CHOLESTEROL INCREASED [None]
  - MUSCLE SPASMS [None]
  - DEPRESSION [None]
  - CHEST PAIN [None]
  - CORONARY ARTERY OCCLUSION [None]
  - CONFUSIONAL STATE [None]
  - VISUAL IMPAIRMENT [None]
  - HAEMOGLOBIN DECREASED [None]
  - HEART RATE DECREASED [None]
